FAERS Safety Report 20872162 (Version 2)
Quarter: 2022Q2

REPORT INFORMATION
  Report Type: Report from Study
  Country: CA (occurrence: CA)
  Receive Date: 20220525
  Receipt Date: 20220623
  Transmission Date: 20220721
  Serious: Yes (Hospitalization, Other)
  Sender: FDA-Public Use
  Company Number: CA-002147023-NVSC2022CA117844

PATIENT

DRUGS (13)
  1. DICLOFENAC [Suspect]
     Active Substance: DICLOFENAC
     Indication: Product used for unknown indication
     Dosage: 1 DF, QD (1 X 75MG)
     Route: 048
     Dates: start: 20191009
  2. PERINDOPRIL ERBUMINE [Suspect]
     Active Substance: PERINDOPRIL ERBUMINE
     Indication: Product used for unknown indication
     Dosage: 1 DOSAGE FORM, QD (1 X 4MG)
     Route: 048
     Dates: start: 20191220, end: 20210408
  3. SINGULAIR [Concomitant]
     Active Substance: MONTELUKAST SODIUM
     Indication: Product used for unknown indication
     Dosage: 1 DF, QD
     Route: 048
     Dates: start: 20210924
  4. BREO ELLIPTA [Concomitant]
     Active Substance: FLUTICASONE FUROATE\VILANTEROL TRIFENATATE
     Indication: Product used for unknown indication
     Dosage: 1 DF, QD
     Route: 050
     Dates: start: 20200414, end: 20210325
  5. VIBERZI [Concomitant]
     Active Substance: ELUXADOLINE
     Indication: Product used for unknown indication
     Dosage: 1 DF, BID
     Route: 048
     Dates: start: 20210209
  6. PREDNISONE [Concomitant]
     Active Substance: PREDNISONE
     Indication: Product used for unknown indication
     Dosage: 1 DF, QD
     Route: 048
     Dates: start: 20211214, end: 20220110
  7. NUCALA [Concomitant]
     Active Substance: MEPOLIZUMAB
     Indication: Product used for unknown indication
     Dosage: UNK
     Route: 065
  8. HYDROCODONE [Concomitant]
     Active Substance: HYDROCODONE
     Indication: Premenstrual syndrome
     Dosage: 1 DF, QD
     Route: 048
     Dates: start: 20210309
  9. OXYCODONE [Concomitant]
     Active Substance: OXYCODONE
     Indication: Premenstrual syndrome
     Dosage: 1 DF, QD
     Route: 048
     Dates: start: 20210512
  10. ZOPICLONE [Concomitant]
     Active Substance: ZOPICLONE
     Indication: Product used for unknown indication
     Dosage: 1 DF, QD
     Route: 048
     Dates: start: 20210611, end: 20220201
  11. TESTOSTERONE [Concomitant]
     Active Substance: TESTOSTERONE
     Indication: Product used for unknown indication
     Dosage: 1 DF, QD (1%-5 G)
     Route: 061
     Dates: start: 20220122
  12. TRAMADOL [Concomitant]
     Active Substance: TRAMADOL
     Indication: Apolipoprotein B
     Dosage: 1 DF, QID
     Route: 048
     Dates: start: 20200602
  13. PREGABALIN [Concomitant]
     Active Substance: PREGABALIN
     Indication: Premenstrual syndrome
     Dosage: 1 DF, BID
     Route: 048
     Dates: start: 20191009

REACTIONS (13)
  - Asthma [Unknown]
  - Pneumonia bacterial [Unknown]
  - Chronic spontaneous urticaria [Unknown]
  - Haemoptysis [Unknown]
  - Wheezing [Unknown]
  - Gastrooesophageal reflux disease [Unknown]
  - Chest discomfort [Unknown]
  - Suffocation feeling [Unknown]
  - Intervertebral disc protrusion [Unknown]
  - Dyspnoea [Unknown]
  - Nasal polyps [Unknown]
  - Vomiting [Unknown]
  - Sleep disorder [Unknown]

NARRATIVE: CASE EVENT DATE: 20200201
